FAERS Safety Report 6583030-3 (Version None)
Quarter: 2010Q1

REPORT INFORMATION
  Report Type: 
  Country: None (occurrence: None)
  Receive Date: 20100216
  Receipt Date: 20100204
  Transmission Date: 20100710
  Serious: Yes (Hospitalization)
  Sender: FDA-Public Use
  Company Number: DE-ROCHE-665407

PATIENT
  Sex: Female
  Weight: 73 kg

DRUGS (3)
  1. BEVACIZUMAB [Suspect]
     Indication: BREAST CANCER
     Dosage: FORM: INFUSION
     Route: 042
  2. EPIRUBICIN [Suspect]
     Indication: BREAST CANCER
     Dosage: FORM: LIQUID; LAST DOSE PRIOR TO SAE: 10 SEP 2009
     Route: 042
     Dates: start: 20090731
  3. TAXOL [Suspect]
     Indication: BREAST CANCER
     Dosage: FORM: LIQUID; LAST DOSE PRIOR TO SAE 22 OCTOBER 2009
     Route: 042
     Dates: start: 20090924

REACTIONS (1)
  - DISORIENTATION [None]
